FAERS Safety Report 4330260-7 (Version None)
Quarter: 2004Q2

REPORT INFORMATION
  Report Type: 
  Country: None (occurrence: None)
  Receive Date: 20040401
  Receipt Date: 20040401
  Transmission Date: 20050107
  Serious: No
  Sender: FDA-Public Use
  Company Number: None

PATIENT
  Age: 77 Year
  Sex: Male
  Weight: 46.2669 kg

DRUGS (7)
  1. FORTEO [Suspect]
     Indication: OSTEOPOROSIS
     Dosage: DAILY INJECTION
     Dates: start: 20030801, end: 20040112
  2. K-DUR 10 [Concomitant]
  3. ADVAIR DISKUS 100/50 [Concomitant]
  4. HYDROCHLOROTHIAZIDE [Concomitant]
  5. OSCAL [Concomitant]
  6. COZAAR [Concomitant]
  7. NORVASC [Concomitant]

REACTIONS (1)
  - TINEA CAPITIS [None]
